FAERS Safety Report 6136434-7 (Version None)
Quarter: 2009Q1

REPORT INFORMATION
  Report Type: 
  Country: None (occurrence: None)
  Receive Date: 20090325
  Receipt Date: 20090318
  Transmission Date: 20090719
  Serious: Yes (Hospitalization)
  Sender: FDA-Public Use
  Company Number: 2009AL001568

PATIENT
  Age: 74 Year
  Sex: Male

DRUGS (1)
  1. DIGOXIN [Suspect]
     Indication: CARDIAC DISORDER
     Dosage: 0.25MG, DAILY, PO; YEARS
     Route: 048

REACTIONS (3)
  - DIZZINESS [None]
  - NAUSEA [None]
  - OVERDOSE [None]
